FAERS Safety Report 20895223 (Version 1)
Quarter: 2022Q2

REPORT INFORMATION
  Report Type: Spontaneous
  Country: US (occurrence: US)
  Receive Date: 20220531
  Receipt Date: 20220531
  Transmission Date: 20220721
  Serious: Yes (Other)
  Sender: FDA-Public Use
  Company Number: US-BAYER-2022A074839

PATIENT

DRUGS (1)
  1. AFRIN NO DRIP NIGHT CHAMOMILE [Suspect]
     Active Substance: OXYMETAZOLINE HYDROCHLORIDE

REACTIONS (3)
  - Drug dependence [Unknown]
  - Incorrect product administration duration [None]
  - Therapeutic response shortened [None]
